FAERS Safety Report 12763239 (Version 2)
Quarter: 2016Q4

REPORT INFORMATION
  Report Type: Report from Study
  Country: FR (occurrence: FR)
  Receive Date: 20160920
  Receipt Date: 20161012
  Transmission Date: 20170207
  Serious: Yes (Death, Other)
  Sender: FDA-Public Use
  Company Number: FR-PFIZER INC-2016435203

PATIENT
  Age: 57 Year
  Sex: Male

DRUGS (1)
  1. ATGAM [Suspect]
     Active Substance: EQUINE THYMOCYTE IMMUNE GLOBULIN
     Indication: APLASTIC ANAEMIA
     Dosage: UNK
     Route: 042
     Dates: start: 20140929, end: 20141005

REACTIONS (2)
  - Drug ineffective [Not Recovered/Not Resolved]
  - Death [Fatal]

NARRATIVE: CASE EVENT DATE: 2015
